FAERS Safety Report 24217541 (Version 2)
Quarter: 2024Q4

REPORT INFORMATION
  Report Type: Spontaneous
  Country: CA (occurrence: CA)
  Receive Date: 20240816
  Receipt Date: 20241004
  Transmission Date: 20250115
  Serious: Yes (Other)
  Sender: PFIZER
  Company Number: CA-PFIZER INC-202400017093

PATIENT
  Age: 58 Year
  Sex: Male
  Weight: 117.5 kg

DRUGS (2)
  1. RUXIENCE [Suspect]
     Active Substance: RITUXIMAB-PVVR
     Indication: Rheumatoid arthritis
     Dosage: 1000 MG, DAY 1 AND DAY 15 FIRST DOSE (DAY 1)
     Route: 042
     Dates: start: 20240116
  2. RUXIENCE [Suspect]
     Active Substance: RITUXIMAB-PVVR
     Dosage: 1000 MG, DAY 1 AND DAY 15 (800 MG 2 WEEKS AND 1 DAY)
     Route: 042
     Dates: start: 20240131

REACTIONS (5)
  - Skin lesion [Unknown]
  - Wound infection [Unknown]
  - Weight increased [Unknown]
  - Incorrect product administration duration [Unknown]
  - Incorrect dose administered [Unknown]

NARRATIVE: CASE EVENT DATE: 20240101
